APPROVED DRUG PRODUCT: ESTRADIOL
Active Ingredient: ESTRADIOL
Strength: 0.01%
Dosage Form/Route: CREAM;VAGINAL
Application: A212313 | Product #001 | TE Code: AB
Applicant: PRASCO LLC DBA PRASCO LABORATORIES
Approved: Jul 15, 2021 | RLD: No | RS: No | Type: RX